FAERS Safety Report 23242753 (Version 1)
Quarter: 2023Q4

REPORT INFORMATION
  Report Type: Spontaneous
  Country: US (occurrence: US)
  Receive Date: 20231129
  Receipt Date: 20231129
  Transmission Date: 20240109
  Serious: Yes (Other)
  Sender: FDA-Public Use
  Company Number: US-MLMSERVICE-20231116-4668896-1

PATIENT
  Age: 78 Year
  Sex: Female

DRUGS (1)
  1. OMEPRAZOLE MAGNESIUM [Suspect]
     Active Substance: OMEPRAZOLE MAGNESIUM
     Indication: Gastrooesophageal reflux disease
     Route: 048
     Dates: start: 2019, end: 2019

REACTIONS (4)
  - Hypokalaemia [Unknown]
  - Hypomagnesaemia [Recovering/Resolving]
  - Hypocalcaemia [Recovered/Resolved]
  - Blood parathyroid hormone decreased [Recovered/Resolved]

NARRATIVE: CASE EVENT DATE: 20190101
